FAERS Safety Report 5867869-5 (Version None)
Quarter: 2008Q3

REPORT INFORMATION
  Report Type: 
  Country: None (occurrence: None)
  Receive Date: 20080902
  Receipt Date: 20080827
  Transmission Date: 20090109
  Serious: Yes (Death)
  Sender: FDA-Public Use
  Company Number: NO-BOEHRINGER INGELHEIM GMBH, GERMANY-2008-SW-00228NO

PATIENT
  Sex: Male

DRUGS (13)
  1. FLOMAX [Suspect]
     Route: 048
  2. PLAVIX [Suspect]
     Route: 048
  3. ASPIRIN [Suspect]
     Route: 048
  4. ZETIA (AMERICAN PRODUCT) [Concomitant]
     Route: 048
  5. SERETIDE [Concomitant]
  6. VENTOLIN [Concomitant]
  7. DESLORATADINE [Concomitant]
     Route: 048
  8. LIPITOR [Concomitant]
     Route: 048
  9. METOPROLOL TARTRATE [Concomitant]
     Route: 048
  10. SINGULAIR [Concomitant]
     Route: 048
  11. AVODART [Concomitant]
     Route: 048
  12. DIOVAN [Concomitant]
     Route: 048
  13. SPIRONOLACTONE [Concomitant]
     Route: 048

REACTIONS (1)
  - CEREBRAL HAEMORRHAGE [None]
